FAERS Safety Report 15795105 (Version 4)
Quarter: 2019Q1

REPORT INFORMATION
  Report Type: Report from Study
  Country: US (occurrence: US)
  Receive Date: 20190107
  Receipt Date: 20190311
  Transmission Date: 20190417
  Serious: Yes (Death, Hospitalization)
  Sender: FDA-Public Use
  Company Number: US-ACTELION-A-US2016-136340

PATIENT
  Age: 59 Year
  Sex: Male
  Weight: 99.77 kg

DRUGS (9)
  1. TRACLEER [Suspect]
     Active Substance: BOSENTAN
     Indication: PULMONARY HYPERTENSION
     Dosage: 125 MG, BID
     Route: 048
     Dates: start: 20080910
  2. TYVASO [Suspect]
     Active Substance: TREPROSTINIL
     Indication: PRODUCT USED FOR UNKNOWN INDICATION
     Dosage: UNK
     Route: 065
     Dates: end: 20160507
  3. TYVASO [Suspect]
     Active Substance: TREPROSTINIL
     Dosage: 9 PUFF, QID
     Route: 055
  4. REMODULIN [Concomitant]
     Active Substance: TREPROSTINIL
  5. TRACLEER [Suspect]
     Active Substance: BOSENTAN
     Dosage: 125 MG, BID
     Route: 048
  6. ADCIRCA [Concomitant]
     Active Substance: TADALAFIL
  7. SILDENAFIL. [Concomitant]
     Active Substance: SILDENAFIL
  8. XARELTO [Concomitant]
     Active Substance: RIVAROXABAN
  9. RIOCIGUAT. [Concomitant]
     Active Substance: RIOCIGUAT

REACTIONS (13)
  - Benign breast neoplasm [Unknown]
  - Diarrhoea [Unknown]
  - Oxygen therapy [Unknown]
  - Nausea [Recovered/Resolved]
  - Cough [Unknown]
  - Hospitalisation [Unknown]
  - Dizziness [Unknown]
  - Hypoxia [Unknown]
  - Headache [Recovered/Resolved]
  - Nasopharyngitis [Unknown]
  - Fluid retention [Unknown]
  - Death [Fatal]
  - Intestinal obstruction [Unknown]

NARRATIVE: CASE EVENT DATE: 20190226
